FAERS Safety Report 25609087 (Version 3)
Quarter: 2025Q3

REPORT INFORMATION
  Report Type: Spontaneous
  Country: US (occurrence: US)
  Receive Date: 20250726
  Receipt Date: 20250908
  Transmission Date: 20251020
  Serious: No
  Sender: SANOFI AVENTIS
  Company Number: US-SA-2025SA214641

PATIENT
  Age: 65 Year
  Sex: Female

DRUGS (15)
  1. KEVZARA [Suspect]
     Active Substance: SARILUMAB
     Indication: Polymyalgia rheumatica
     Dosage: 200 MG, QOW
     Route: 058
  2. TYLENOL ARTHRITIS PAIN [Concomitant]
     Active Substance: ACETAMINOPHEN
  3. TYLENOL EXTRA STRENGTH [Concomitant]
     Active Substance: ACETAMINOPHEN
  4. VITAMIN C [Concomitant]
     Active Substance: ASCORBIC ACID
  5. MINOXIDIL [Concomitant]
     Active Substance: MINOXIDIL
  6. ACTIVATED CHARCOAL [Concomitant]
     Active Substance: ACTIVATED CHARCOAL
  7. MAGNESIUM GLYCINATE [Concomitant]
     Active Substance: MAGNESIUM GLYCINATE
  8. VITAMINS [Concomitant]
     Active Substance: VITAMINS
  9. NATTOKINASE [Concomitant]
     Active Substance: NATTOKINASE
  10. Curcumin 95 [Concomitant]
  11. OZEMPIC [Concomitant]
     Active Substance: SEMAGLUTIDE
  12. MINOXIDIL [Concomitant]
     Active Substance: MINOXIDIL
  13. BEVACIZUMAB [Concomitant]
     Active Substance: BEVACIZUMAB
  14. PREDNISONE [Concomitant]
     Active Substance: PREDNISONE
  15. Omega 3 6 9 complex [Concomitant]

REACTIONS (4)
  - Musculoskeletal discomfort [Recovering/Resolving]
  - Gait disturbance [Recovering/Resolving]
  - Arthralgia [Unknown]
  - Nasopharyngitis [Unknown]

NARRATIVE: CASE EVENT DATE: 20250101
